FAERS Safety Report 5245704-6 (Version None)
Quarter: 2007Q1

REPORT INFORMATION
  Report Type: 
  Country: None (occurrence: None)
  Receive Date: 20070216
  Receipt Date: 20070201
  Transmission Date: 20070707
  Serious: Yes (Life-Threatening)
  Sender: FDA-Public Use
  Company Number: US019343

PATIENT
  Sex: Male

DRUGS (3)
  1. PROVIGIL [Suspect]
     Indication: NARCOLEPSY
     Dosage: 100 MG PRN ORAL
     Route: 048
     Dates: start: 20030101, end: 20070101
  2. ALLEGRA [Concomitant]
  3. ZANTAC [Concomitant]

REACTIONS (2)
  - ANAPHYLACTIC SHOCK [None]
  - LOSS OF CONSCIOUSNESS [None]
